FAERS Safety Report 7222255-0 (Version None)
Quarter: 2011Q1

REPORT INFORMATION
  Report Type: 
  Country: None (occurrence: None)
  Receive Date: 20110112
  Receipt Date: 20110107
  Transmission Date: 20110831
  Serious: Yes (Death)
  Sender: FDA-Public Use
  Company Number: US-MERCK-1101USA00209

PATIENT
  Age: 56 Year
  Sex: Female

DRUGS (11)
  1. CLONAZEPAM [Suspect]
     Route: 048
  2. ALCOHOL [Suspect]
     Route: 048
  3. VENLAFAXINE HYDROCHLORIDE [Suspect]
     Route: 048
  4. OXYCONTIN [Suspect]
     Route: 048
  5. ZESTRIL [Suspect]
     Route: 048
  6. PROMETHAZINE [Suspect]
     Route: 048
  7. ZOCOR [Suspect]
     Route: 048
  8. METFORMIN [Suspect]
     Route: 048
  9. TRAMADOL HYDROCHLORIDE [Suspect]
     Route: 048
  10. MELOXICAM [Suspect]
     Route: 048
  11. OXYCODONE [Suspect]
     Route: 048

REACTIONS (1)
  - TOXICITY TO VARIOUS AGENTS [None]
